FAERS Safety Report 24334231 (Version 3)
Quarter: 2025Q1

REPORT INFORMATION
  Report Type: Spontaneous
  Country: JP (occurrence: JP)
  Receive Date: 20240918
  Receipt Date: 20250102
  Transmission Date: 20250409
  Serious: Yes (Other)
  Sender: EISAI
  Company Number: JP-Eisai-202407482_LEN-RCC_P_1

PATIENT
  Age: 83 Year
  Sex: Male

DRUGS (4)
  1. LENVIMA [Suspect]
     Active Substance: LENVATINIB
     Indication: Renal cell carcinoma
     Route: 048
     Dates: start: 20231016, end: 202311
  2. LENVIMA [Suspect]
     Active Substance: LENVATINIB
     Route: 048
     Dates: start: 202401
  3. LENVIMA [Suspect]
     Active Substance: LENVATINIB
     Dosage: WEEKENDS-OFF
     Route: 048
     Dates: start: 2024
  4. KEYTRUDA [Suspect]
     Active Substance: PEMBROLIZUMAB
     Indication: Renal cell carcinoma
     Dosage: 3 COURSES
     Route: 041
     Dates: start: 20231016, end: 20231127

REACTIONS (3)
  - Adrenal insufficiency [Unknown]
  - Decreased appetite [Recovered/Resolved]
  - Blood corticotrophin decreased [Unknown]

NARRATIVE: CASE EVENT DATE: 20231101
